FAERS Safety Report 6652029-0 (Version None)
Quarter: 2010Q1

REPORT INFORMATION
  Report Type: 
  Country: None (occurrence: None)
  Receive Date: 20100325
  Receipt Date: 20100317
  Transmission Date: 20100710
  Serious: Yes (Other)
  Sender: FDA-Public Use
  Company Number: US-GILEAD-2010-0026713

PATIENT
  Age: 65 Year
  Sex: Male

DRUGS (10)
  1. LETAIRIS [Suspect]
     Indication: PULMONARY ARTERIAL HYPERTENSION
     Route: 048
     Dates: start: 20091020
  2. WARFARIN SODIUM [Concomitant]
  3. FUROSEMIDE [Concomitant]
  4. METOPROLOL [Concomitant]
  5. NICARDIA [Concomitant]
  6. GLYBURIDE [Concomitant]
  7. FISH OIL [Concomitant]
  8. LOVASTATIN [Concomitant]
  9. NIACIN [Concomitant]
  10. POTASSIUM [Concomitant]

REACTIONS (1)
  - HAEMOLYTIC ANAEMIA [None]
